FAERS Safety Report 13440818 (Version 1)
Quarter: 2017Q2

REPORT INFORMATION
  Report Type: Spontaneous
  Country: US (occurrence: US)
  Receive Date: 20170413
  Receipt Date: 20170413
  Transmission Date: 20170830
  Serious: No
  Sender: FDA-Public Use
  Company Number: US-ASTELLAS-2016US022410

PATIENT
  Age: 3 Year
  Sex: Male

DRUGS (1)
  1. PROGRAF [Suspect]
     Active Substance: TACROLIMUS\TACROLIMUS ANHYDROUS
     Indication: HEART TRANSPLANT
     Dosage: 1.7 ML, TWICE DAILY OF 0.5 MG/ML SUSPENSION
     Route: 065
     Dates: start: 201402

REACTIONS (1)
  - Product preparation error [Unknown]
